FAERS Safety Report 7026604-8 (Version None)
Quarter: 2010Q4

REPORT INFORMATION
  Report Type: 
  Country: None (occurrence: None)
  Receive Date: 20101004
  Receipt Date: 20100923
  Transmission Date: 20110411
  Serious: Yes (Hospitalization)
  Sender: FDA-Public Use
  Company Number: FR-NOVOPROD-315370

PATIENT
  Age: 68 Year
  Sex: Male

DRUGS (6)
  1. LEVEMIR [Suspect]
     Indication: DIABETES MELLITUS
     Dosage: UNK
     Route: 058
     Dates: end: 20100503
  2. COAPROVEL [Concomitant]
     Dosage: 300 MG/12,5 MG
     Route: 048
     Dates: end: 20100504
  3. METFORMIN HCL [Concomitant]
     Dosage: 850 MG, TID
     Route: 048
     Dates: end: 20100504
  4. DIAMICRON [Concomitant]
     Dosage: 30 MG, UNK
     Route: 048
     Dates: end: 20100504
  5. INEXIUM                            /01479302/ [Concomitant]
     Dosage: 20 MG, UNK
     Route: 048
     Dates: end: 20100504
  6. BYETTA [Concomitant]
     Dosage: UNK
     Route: 058
     Dates: end: 20100503

REACTIONS (1)
  - BLOOD CREATININE INCREASED [None]
